FAERS Safety Report 19509316 (Version 1)
Quarter: 2021Q3

REPORT INFORMATION
  Report Type: Spontaneous
  Country: US (occurrence: US)
  Receive Date: 20210709
  Receipt Date: 20210709
  Transmission Date: 20211014
  Serious: No
  Sender: FDA-Public Use
  Company Number: US-PRINSTON PHARMACEUTICAL INC.-2021PRN00185

PATIENT
  Age: 62 Year
  Sex: Female
  Weight: 54.42 kg

DRUGS (6)
  1. UNSPECIFIED ANTIDEPRESSANT [Concomitant]
     Active Substance: UNSPECIFIED INGREDIENT
  2. CLONAZEPAM. [Suspect]
     Active Substance: CLONAZEPAM
     Indication: CHRONIC FATIGUE SYNDROME
     Dosage: 0.25 MG (HALF TABLET)
     Dates: start: 20210401, end: 202105
  3. CLONAZEPAM. [Suspect]
     Active Substance: CLONAZEPAM
     Dosage: 0.125 MG (1/4 TABLET)
     Dates: start: 202105, end: 20210528
  4. TRAZODONE [Concomitant]
     Active Substance: TRAZODONE HYDROCHLORIDE
  5. CLONAZEPAM (TEVA) [Suspect]
     Active Substance: CLONAZEPAM
     Indication: CHRONIC FATIGUE SYNDROME
  6. COVID?19 VACCINE NOS. [Suspect]
     Active Substance: COVID-19 VACCINE NOS
     Dosage: UNK
     Dates: start: 2021, end: 2021

REACTIONS (8)
  - Product substitution issue [Recovered/Resolved]
  - Off label use [Recovered/Resolved]
  - Muscle spasms [Recovered/Resolved]
  - Pain [Recovering/Resolving]
  - Muscle tightness [Recovered/Resolved]
  - Bruxism [Recovering/Resolving]
  - Unevaluable event [Recovering/Resolving]
  - Poor quality sleep [Not Recovered/Not Resolved]

NARRATIVE: CASE EVENT DATE: 2021
